FAERS Safety Report 7707724-9 (Version None)
Quarter: 2011Q3

REPORT INFORMATION
  Report Type: 
  Country: None (occurrence: None)
  Receive Date: 20110824
  Receipt Date: 20110811
  Transmission Date: 20111222
  Serious: Yes (Hospitalization)
  Sender: FDA-Public Use
  Company Number: NL-GENENTECH-318133

PATIENT
  Sex: Female
  Weight: 60 kg

DRUGS (17)
  1. RITUXIMAB [Suspect]
     Indication: DIFFUSE LARGE B-CELL LYMPHOMA
     Dosage: 600 MG, UNK
     Route: 042
  2. VINCRISTINE [Suspect]
     Dosage: 2 MG, UNK
     Route: 042
     Dates: start: 20110614
  3. PREDNISONE [Suspect]
     Dosage: 88 MG, UNK
     Route: 048
     Dates: start: 20110614
  4. RITUXIMAB [Suspect]
     Dosage: 600 MG, UNK
     Route: 042
     Dates: start: 20110404
  5. RITUXIMAB [Suspect]
     Dosage: 700 MG, UNK
     Route: 042
     Dates: start: 20110614
  6. CYCLOPHOSPHAMIDE [Suspect]
     Dosage: 1320 MG, UNK
     Route: 042
     Dates: start: 20110614
  7. VINCRISTINE [Suspect]
     Indication: DIFFUSE LARGE B-CELL LYMPHOMA
     Dosage: UNK
     Route: 042
  8. VINCRISTINE [Suspect]
     Dosage: 2 MG, UNK
     Route: 042
     Dates: start: 20110404
  9. PEGFILGRASTIM [Suspect]
     Dosage: 6 MG, UNK
     Route: 058
     Dates: start: 20110617
  10. DOXORUBICIN HCL [Suspect]
     Dosage: 84 MG, UNK
     Route: 042
     Dates: start: 20110404
  11. DOXORUBICIN HCL [Suspect]
     Dosage: 88 MG, UNK
     Route: 042
     Dates: start: 20110614
  12. PEGFILGRASTIM [Suspect]
     Indication: DIFFUSE LARGE B-CELL LYMPHOMA
     Dosage: 6 MG, UNK
     Route: 058
     Dates: start: 20110407, end: 20110407
  13. CYCLOPHOSPHAMIDE [Suspect]
     Indication: DIFFUSE LARGE B-CELL LYMPHOMA
     Dosage: UNK
     Route: 042
  14. PREDNISONE [Suspect]
     Indication: DIFFUSE LARGE B-CELL LYMPHOMA
     Dosage: UNK
     Route: 048
  15. CYCLOPHOSPHAMIDE [Suspect]
     Dosage: 1280 MG, UNK
     Route: 042
     Dates: start: 20110404
  16. DOXORUBICIN HCL [Suspect]
     Indication: DIFFUSE LARGE B-CELL LYMPHOMA
     Dosage: UNK
     Route: 042
  17. PREDNISONE [Suspect]
     Dosage: 100 MG, UNK
     Route: 048
     Dates: start: 20110404

REACTIONS (1)
  - PLEURAL EFFUSION [None]
